FAERS Safety Report 20436779 (Version 2)
Quarter: 2022Q1

REPORT INFORMATION
  Report Type: Spontaneous
  Country: US (occurrence: US)
  Receive Date: 20220207
  Receipt Date: 20220218
  Transmission Date: 20220423
  Serious: Yes (Other)
  Sender: FDA-Public Use
  Company Number: US-009507513-2202USA000522

PATIENT

DRUGS (1)
  1. STROMECTOL [Suspect]
     Active Substance: IVERMECTIN
     Indication: COVID-19
     Dosage: UNK
     Route: 048

REACTIONS (6)
  - Haematochezia [Unknown]
  - Visual impairment [Unknown]
  - Abdominal pain upper [Unknown]
  - Diarrhoea [Unknown]
  - Overdose [Unknown]
  - Off label use [Unknown]
